FAERS Safety Report 9650797 (Version 2)
Quarter: 2014Q1

REPORT INFORMATION
  Report Type: Spontaneous
  Country: IT (occurrence: IT)
  Receive Date: 20131029
  Receipt Date: 20140124
  Transmission Date: 20141002
  Serious: Yes (Other)
  Sender: FDA-Public Use
  Company Number: IT-BAYER-2013-127744

PATIENT
  Age: 40 Year
  Sex: Female

DRUGS (2)
  1. YAZ [Suspect]
     Route: 048
  2. RIFADIN [Suspect]
     Indication: ANTIBIOTIC PROPHYLAXIS
     Dosage: 3600 MG, ONCE
     Route: 048
     Dates: start: 20130830, end: 20130903

REACTIONS (3)
  - Ovarian cyst [None]
  - Drug interaction [Unknown]
  - Drug ineffective [Unknown]
